FAERS Safety Report 23347428 (Version 1)
Quarter: 2023Q4

REPORT INFORMATION
  Report Type: Spontaneous
  Country: DE (occurrence: DE)
  Receive Date: 20231228
  Receipt Date: 20231228
  Transmission Date: 20240110
  Serious: Yes (Hospitalization, Other)
  Sender: FDA-Public Use
  Company Number: DE-EMBRYOTOX-202202119

PATIENT
  Age: 1 Day
  Sex: Male
  Weight: 2.88 kg

DRUGS (4)
  1. LAMOTRIGINE [Suspect]
     Active Substance: LAMOTRIGINE
     Indication: Mood swings
     Dosage: 250 [MG/D ]/ AT GW 30 INCREASED TO 100-0- 125 MG, FURTHER INCREASE UP TO 250 MG/D UNTIL THE END OF P
     Route: 064
  2. QUETIAPINE [Suspect]
     Active Substance: QUETIAPINE
     Indication: Borderline personality disorder
     Dosage: 225 [MG/D ]/ 225 MG/D, 50 MG/D AS SUSTAINED RELEASE TABLET
     Route: 064
     Dates: start: 20210618, end: 20220318
  3. VENLAFAXINE [Suspect]
     Active Substance: VENLAFAXINE HYDROCHLORIDE
     Indication: Borderline personality disorder
     Dosage: 150 [MG/D ]
     Route: 064
     Dates: start: 20210618, end: 20220318
  4. BOOSTRIX [Concomitant]
     Active Substance: TETANUS TOXOID, REDUCED DIPHTHERIA TOXOID AND ACELLULAR PERTUSSIS VACCINE, ADSORBED ANTIGENS
     Indication: Immunisation
     Dosage: UNK
     Route: 064
     Dates: start: 20220103, end: 20220103

REACTIONS (5)
  - Respiratory disorder neonatal [Recovered/Resolved]
  - Small for dates baby [Recovering/Resolving]
  - Neonatal hypoxia [Recovered/Resolved]
  - Neonatal asphyxia [Recovered/Resolved]
  - Foetal exposure during pregnancy [Unknown]

NARRATIVE: CASE EVENT DATE: 20220301
